FAERS Safety Report 5357855-6 (Version None)
Quarter: 2007Q2

REPORT INFORMATION
  Report Type: 
  Country: None (occurrence: None)
  Receive Date: 20070530
  Receipt Date: 20070220
  Transmission Date: 20071010
  Serious: Yes (Hospitalization)
  Sender: FDA-Public Use
  Company Number: US200701002773

PATIENT
  Age: 11 Year
  Sex: Male
  Weight: 51.7 kg

DRUGS (6)
  1. ZYPREXA [Suspect]
     Dosage: 2.5 MG
     Dates: start: 20020618, end: 20030207
  2. DEPAKOTE [Concomitant]
  3. CONCERTA [Concomitant]
  4. STRATTERA [Concomitant]
  5. WELLBUTRIN [Concomitant]
  6. ANAFRANIL [Concomitant]

REACTIONS (2)
  - DIABETES MELLITUS [None]
  - METABOLIC DISORDER [None]
